FAERS Safety Report 7917294-8 (Version None)
Quarter: 2011Q4

REPORT INFORMATION
  Report Type: 
  Country: None (occurrence: None)
  Receive Date: 20111116
  Receipt Date: 20111107
  Transmission Date: 20120403
  Serious: Yes (Other)
  Sender: FDA-Public Use
  Company Number: PHHY2011JP89019

PATIENT
  Age: 70 Year
  Sex: Male

DRUGS (11)
  1. ZOMETA [Suspect]
     Dosage: 4 MG, PER ADMINSTRATION
     Route: 041
     Dates: start: 20070124
  2. NEUQUINON [Concomitant]
     Dosage: 30 MG, UNK
     Route: 048
     Dates: end: 20111003
  3. ZOMETA [Suspect]
     Indication: METASTASES TO BONE
     Dosage: 4 MG, PER ADMINSTRATION
     Route: 041
     Dates: start: 20070101
  4. DIART [Concomitant]
     Dosage: 60 MG, UNK
     Route: 048
     Dates: end: 20111003
  5. KALGUT [Concomitant]
     Dosage: 15 MG, UNK
     Route: 048
     Dates: end: 20111003
  6. LIVACT [Concomitant]
     Dosage: 8.3 MG, UNK
     Route: 048
     Dates: start: 20060412, end: 20111003
  7. RABEPRAZOLE SODIUM [Concomitant]
     Dosage: 10 MG, UNK
     Route: 048
     Dates: start: 20080512, end: 20111003
  8. SUNRYTHM [Concomitant]
     Dosage: 100 MG, UNK
     Route: 048
     Dates: start: 20060426, end: 20111003
  9. WARFARIN SODIUM [Concomitant]
     Dosage: 1.5 MG, UNK
     Route: 048
     Dates: start: 20060428, end: 20111003
  10. ZOLPIDEM [Concomitant]
     Dosage: 0.5 MG, UNK
     Route: 048
     Dates: start: 20100222, end: 20111003
  11. LANIRAPID [Concomitant]
     Dosage: 0.1 MG, UNK
     Route: 048
     Dates: end: 20111003

REACTIONS (5)
  - OSTEONECROSIS [None]
  - JOINT SWELLING [None]
  - OEDEMA PERIPHERAL [None]
  - OSTEOCHONDROSIS [None]
  - PAIN IN EXTREMITY [None]
